FAERS Safety Report 10522822 (Version 5)
Quarter: 2015Q2

REPORT INFORMATION
  Report Type: Spontaneous
  Country: JP (occurrence: JP)
  Receive Date: 20141016
  Receipt Date: 20150624
  Transmission Date: 20150821
  Serious: Yes (Hospitalization)
  Sender: FDA-Public Use
  Company Number: JP-CELGENE-087-21880-14074110

PATIENT
  Age: 59 Year
  Sex: Male
  Weight: 94.8 kg

DRUGS (76)
  1. NORVASC [Concomitant]
     Active Substance: AMLODIPINE BESYLATE
     Indication: PRODUCT USED FOR UNKNOWN INDICATION
     Route: 065
     Dates: start: 2003
  2. FULMETA [Concomitant]
     Active Substance: MOMETASONE
     Indication: PRODUCT USED FOR UNKNOWN INDICATION
     Route: 065
     Dates: start: 201106
  3. ACETAMINOPHEN. [Concomitant]
     Active Substance: ACETAMINOPHEN
     Route: 065
     Dates: start: 20131005
  4. ACETAMINOPHEN. [Concomitant]
     Active Substance: ACETAMINOPHEN
     Route: 065
     Dates: start: 20150609, end: 20150609
  5. SOLACET F [Concomitant]
     Indication: ADVERSE EVENT
     Route: 065
     Dates: start: 20140625, end: 20140625
  6. LACTEC [Concomitant]
     Active Substance: CALCIUM CHLORIDE ANHYDROUS\POTASSIUM CHLORIDE\SODIUM CHLORIDE\SODIUM LACTATE
     Indication: ADVERSE EVENT
     Route: 050
     Dates: start: 20140721, end: 20140721
  7. MIYA-BM [Concomitant]
     Active Substance: CLOSTRIDIUM BUTYRICUM SPORES STRAIN M-55
     Indication: ADVERSE EVENT
     Route: 065
     Dates: start: 20140514, end: 20140722
  8. PL [Concomitant]
     Active Substance: ACETAMINOPHEN\CAFFEINE\PROMETHAZINE\SALICYLAMIDE
     Route: 065
     Dates: start: 20140915, end: 20141022
  9. INAVIR [Concomitant]
     Active Substance: LANINAMIVIR
     Indication: ADVERSE EVENT
     Route: 065
     Dates: start: 20150104, end: 20150104
  10. LENADEX [Suspect]
     Active Substance: DEXAMETHASONE ACETATE
     Indication: PLASMA CELL MYELOMA RECURRENT
     Route: 048
     Dates: start: 20120725
  11. KENALOG [Concomitant]
     Active Substance: TRIAMCINOLONE ACETONIDE
     Indication: ADVERSE EVENT
     Route: 065
     Dates: start: 20130109
  12. ZYLORIC [Concomitant]
     Active Substance: ALLOPURINOL
     Indication: PRODUCT USED FOR UNKNOWN INDICATION
     Route: 065
     Dates: start: 2003
  13. SHAKUYAKUKANZOTO [Concomitant]
     Active Substance: HERBALS
     Indication: PRODUCT USED FOR UNKNOWN INDICATION
     Route: 065
     Dates: start: 20130529
  14. ACETAMINOPHEN. [Concomitant]
     Active Substance: ACETAMINOPHEN
     Route: 065
     Dates: start: 20131122, end: 20131123
  15. ALLOPURINOL. [Concomitant]
     Active Substance: ALLOPURINOL
     Indication: PRODUCT USED FOR UNKNOWN INDICATION
     Route: 065
     Dates: start: 2003
  16. HYDROXYZINE HYDROCHLORIDE. [Concomitant]
     Active Substance: HYDROXYZINE HYDROCHLORIDE
     Indication: ADVERSE EVENT
     Route: 065
     Dates: start: 20140720, end: 20140725
  17. KCL [Concomitant]
     Active Substance: POTASSIUM CHLORIDE
     Indication: ADVERSE EVENT
     Route: 050
     Dates: start: 20140721, end: 20140721
  18. KAIGEN [Concomitant]
     Active Substance: ACETAMINOPHEN\CAFFEINE\CINNAMON\GINGER\GLYCYRRHIZA GLABRA\METHYLEPHEDRINE HYDROCHLORIDE, (+/-)-
     Route: 065
     Dates: start: 20150607, end: 20150609
  19. PL [Concomitant]
     Active Substance: ACETAMINOPHEN\CAFFEINE\PROMETHAZINE\SALICYLAMIDE
     Indication: ADVERSE EVENT
     Route: 065
     Dates: start: 20140305, end: 20140312
  20. CAEBOCISTEINE [Concomitant]
     Indication: ADVERSE EVENT
     Route: 065
     Dates: start: 20150107
  21. DEXAMETHASONE. [Suspect]
     Active Substance: DEXAMETHASONE
     Indication: PLASMA CELL MYELOMA RECURRENT
     Route: 041
     Dates: start: 20120709, end: 20120709
  22. DEXAMETHASONE. [Suspect]
     Active Substance: DEXAMETHASONE
     Indication: PLASMA CELL MYELOMA
     Route: 041
     Dates: start: 20120725
  23. ELOTUZUMAB [Suspect]
     Active Substance: ELOTUZUMAB
     Route: 041
     Dates: start: 20120725
  24. ACETAMINOPHEN. [Concomitant]
     Active Substance: ACETAMINOPHEN
     Indication: ADVERSE EVENT
     Route: 065
     Dates: start: 20130223, end: 20130314
  25. ACETAMINOPHEN. [Concomitant]
     Active Substance: ACETAMINOPHEN
     Route: 065
     Dates: start: 20140914, end: 20140915
  26. TENELIGIPTIN HYDROBROMIDE HYDRATE [Concomitant]
     Route: 065
     Dates: start: 20141031
  27. ACETYLSALICYLIC ACID [Concomitant]
     Active Substance: ASPIRIN
     Indication: PRODUCT USED FOR UNKNOWN INDICATION
     Route: 065
     Dates: start: 20120725
  28. PHELLOBERIN [Concomitant]
     Indication: ADVERSE EVENT
     Route: 065
     Dates: start: 20140730, end: 20140815
  29. MAALOX ANTACID [Concomitant]
     Active Substance: ALUMINUM HYDROXIDE\DIMETHICONE\MAGNESIUM HYDROXIDE
     Indication: ADVERSE EVENT
     Route: 065
     Dates: start: 20140802, end: 20140802
  30. KAIGEN [Concomitant]
     Active Substance: ACETAMINOPHEN\CAFFEINE\CINNAMON\GINGER\GLYCYRRHIZA GLABRA\METHYLEPHEDRINE HYDROCHLORIDE, (+/-)-
     Route: 065
     Dates: start: 20141205, end: 20141210
  31. PL [Concomitant]
     Active Substance: ACETAMINOPHEN\CAFFEINE\PROMETHAZINE\SALICYLAMIDE
     Route: 065
     Dates: start: 20150610, end: 20150615
  32. REVLIMID [Suspect]
     Active Substance: LENALIDOMIDE
     Indication: PLASMA CELL MYELOMA RECURRENT
     Route: 048
     Dates: start: 20120725
  33. BAYASPIRIN [Concomitant]
     Active Substance: ASPIRIN
     Indication: PRODUCT USED FOR UNKNOWN INDICATION
     Route: 065
     Dates: start: 20120725
  34. TAKEPRON [Concomitant]
     Active Substance: LANSOPRAZOLE
     Indication: PRODUCT USED FOR UNKNOWN INDICATION
     Route: 065
     Dates: start: 20120725, end: 20140624
  35. ACETAMINOPHEN. [Concomitant]
     Active Substance: ACETAMINOPHEN
     Route: 065
     Dates: start: 20140720, end: 20140725
  36. TENELIGIPTIN HYDROBROMIDE HYDRATE [Concomitant]
     Indication: ADVERSE EVENT
     Route: 065
     Dates: start: 20140112, end: 20140809
  37. SOLDEM 3A [Concomitant]
     Active Substance: CARBOHYDRATES\POTASSIUM CHLORIDE\SODIUM CHLORIDE\SODIUM LACTATE
     Indication: ADVERSE EVENT
     Route: 065
     Dates: start: 20140720, end: 20140730
  38. MIYA-BM [Concomitant]
     Active Substance: CLOSTRIDIUM BUTYRICUM SPORES STRAIN M-55
     Route: 065
     Dates: start: 20150121, end: 20150129
  39. KAIGEN [Concomitant]
     Active Substance: ACETAMINOPHEN\CAFFEINE\CINNAMON\GINGER\GLYCYRRHIZA GLABRA\METHYLEPHEDRINE HYDROCHLORIDE, (+/-)-
     Indication: ADVERSE EVENT
     Route: 065
     Dates: start: 20140914, end: 20140916
  40. ELOTUZUMAB [Suspect]
     Active Substance: ELOTUZUMAB
     Indication: PLASMA CELL MYELOMA
     Route: 041
     Dates: start: 20120725, end: 20120725
  41. FLURBIPROFEN. [Concomitant]
     Active Substance: FLURBIPROFEN
     Indication: PRODUCT USED FOR UNKNOWN INDICATION
     Route: 065
     Dates: start: 20130905
  42. BROTIZOLAM [Concomitant]
     Active Substance: BROTIZOLAM
     Indication: ADVERSE EVENT
     Route: 065
     Dates: start: 20130918
  43. TENELIGIPTIN HYDROBROMIDE HYDRATE [Concomitant]
     Route: 065
     Dates: start: 20140124
  44. LEVOFLOXACIN HEMIHYDRATE [Concomitant]
     Active Substance: LEVOFLOXACIN
     Route: 048
     Dates: start: 20140917, end: 20140924
  45. LEVOFLOXACIN HEMIHYDRATE [Concomitant]
     Active Substance: LEVOFLOXACIN
     Route: 065
     Dates: start: 20150121, end: 20150123
  46. TRIAMCINOLONE ACETONIDE. [Concomitant]
     Active Substance: TRIAMCINOLONE ACETONIDE
     Indication: PRODUCT USED FOR UNKNOWN INDICATION
     Route: 065
     Dates: start: 20130109
  47. AMLODIPINE BESYLATE. [Concomitant]
     Active Substance: AMLODIPINE BESYLATE
     Indication: PRODUCT USED FOR UNKNOWN INDICATION
     Route: 065
     Dates: start: 2003
  48. MIYA-BM [Concomitant]
     Active Substance: CLOSTRIDIUM BUTYRICUM SPORES STRAIN M-55
     Route: 065
     Dates: start: 20140724, end: 20140731
  49. RABEPRAZOLE SODIUM. [Concomitant]
     Active Substance: RABEPRAZOLE SODIUM
     Indication: PRODUCT USED FOR UNKNOWN INDICATION
     Route: 065
     Dates: start: 20140802
  50. FAMOTIDINE. [Concomitant]
     Active Substance: FAMOTIDINE
     Indication: ADVERSE EVENT
     Route: 065
     Dates: start: 20140802, end: 20140802
  51. KAIGEN [Concomitant]
     Active Substance: ACETAMINOPHEN\CAFFEINE\CINNAMON\GINGER\GLYCYRRHIZA GLABRA\METHYLEPHEDRINE HYDROCHLORIDE, (+/-)-
     Route: 065
     Dates: start: 20141231, end: 20141231
  52. EPRAZINONE HYDROCHLORIDE [Concomitant]
     Active Substance: EPRAZINONE HYDROCHLORIDE
     Indication: ADVERSE EVENT
     Route: 065
     Dates: start: 20150107
  53. REVLIMID [Suspect]
     Active Substance: LENALIDOMIDE
     Route: 048
  54. LIPITOR [Concomitant]
     Active Substance: ATORVASTATIN CALCIUM
     Indication: PRODUCT USED FOR UNKNOWN INDICATION
     Route: 065
     Dates: start: 2003
  55. ZOMETA [Concomitant]
     Active Substance: ZOLEDRONIC ACID
     Indication: PRODUCT USED FOR UNKNOWN INDICATION
     Route: 065
     Dates: start: 20110907
  56. LEVOFLOXACIN HEMIHYDRATE [Concomitant]
     Active Substance: LEVOFLOXACIN
     Route: 065
     Dates: start: 20150403, end: 20150407
  57. LANSOPRAZOLE. [Concomitant]
     Active Substance: LANSOPRAZOLE
     Indication: PRODUCT USED FOR UNKNOWN INDICATION
     Route: 065
     Dates: start: 20120725
  58. SOLACET F [Concomitant]
     Route: 065
     Dates: start: 20140720, end: 20140722
  59. KAIGEN [Concomitant]
     Active Substance: ACETAMINOPHEN\CAFFEINE\CINNAMON\GINGER\GLYCYRRHIZA GLABRA\METHYLEPHEDRINE HYDROCHLORIDE, (+/-)-
     Route: 065
     Dates: start: 20150331, end: 20150331
  60. KAIGEN [Concomitant]
     Active Substance: ACETAMINOPHEN\CAFFEINE\CINNAMON\GINGER\GLYCYRRHIZA GLABRA\METHYLEPHEDRINE HYDROCHLORIDE, (+/-)-
     Route: 065
     Dates: start: 20150403, end: 20150408
  61. CEFDINIR. [Concomitant]
     Active Substance: CEFDINIR
  62. REVLIMID [Suspect]
     Active Substance: LENALIDOMIDE
     Indication: PLASMA CELL MYELOMA
     Route: 048
     Dates: start: 20120822, end: 20120911
  63. ALLEGRA [Concomitant]
     Active Substance: FEXOFENADINE HYDROCHLORIDE
     Route: 065
     Dates: start: 20121101
  64. ACETAMINOPHEN. [Concomitant]
     Active Substance: ACETAMINOPHEN
     Route: 065
     Dates: start: 20140215, end: 20140215
  65. LEVOFLOXACIN HEMIHYDRATE [Concomitant]
     Active Substance: LEVOFLOXACIN
     Indication: PRODUCT USED FOR UNKNOWN INDICATION
     Route: 048
     Dates: start: 20140717, end: 20140720
  66. LEVOFLOXACIN HEMIHYDRATE [Concomitant]
     Active Substance: LEVOFLOXACIN
     Route: 065
     Dates: start: 20141210, end: 20141210
  67. SOLACET F [Concomitant]
     Route: 065
     Dates: start: 20140803, end: 20140803
  68. MIYA-BM [Concomitant]
     Active Substance: CLOSTRIDIUM BUTYRICUM SPORES STRAIN M-55
     Route: 065
     Dates: start: 20140730, end: 20140820
  69. ELOTUZUMAB [Suspect]
     Active Substance: ELOTUZUMAB
     Indication: PLASMA CELL MYELOMA RECURRENT
     Route: 041
     Dates: start: 20120709, end: 20120709
  70. ALLEGRA [Concomitant]
     Active Substance: FEXOFENADINE HYDROCHLORIDE
     Indication: ADVERSE EVENT
     Route: 065
     Dates: start: 20121026, end: 20121031
  71. ACETAMINOPHEN. [Concomitant]
     Active Substance: ACETAMINOPHEN
     Route: 065
     Dates: start: 20130721, end: 20130723
  72. MOMETASONE FUROATE. [Concomitant]
     Active Substance: MOMETASONE FUROATE
     Indication: PRODUCT USED FOR UNKNOWN INDICATION
     Route: 065
     Dates: start: 201106
  73. POTASSIUM ASPARTATE [Concomitant]
     Active Substance: POTASSIUM ASPARTATE
     Indication: ADVERSE EVENT
     Route: 050
     Dates: start: 20140721, end: 20140728
  74. METOCLOPRAMIDE HYDROCHLORIDE. [Concomitant]
     Active Substance: METOCLOPRAMIDE HYDROCHLORIDE
     Indication: ADVERSE EVENT
     Route: 065
     Dates: start: 20140803, end: 20140803
  75. KAIGEN [Concomitant]
     Active Substance: ACETAMINOPHEN\CAFFEINE\CINNAMON\GINGER\GLYCYRRHIZA GLABRA\METHYLEPHEDRINE HYDROCHLORIDE, (+/-)-
     Route: 065
     Dates: start: 20141011, end: 20141013
  76. MEDICON [Concomitant]
     Active Substance: DEXTROMETHORPHAN HYDROBROMIDE
     Indication: ADVERSE EVENT
     Route: 065
     Dates: start: 20150104, end: 20150107

REACTIONS (1)
  - Colitis [Recovered/Resolved]

NARRATIVE: CASE EVENT DATE: 20140720
